FAERS Safety Report 5456601-5 (Version None)
Quarter: 2007Q3

REPORT INFORMATION
  Report Type: 
  Country: None (occurrence: None)
  Receive Date: 20070917
  Receipt Date: 20070917
  Transmission Date: 20080115
  Serious: Yes (Hospitalization)
  Sender: FDA-Public Use
  Company Number: None

PATIENT
  Age: 65 Year
  Sex: Male

DRUGS (2)
  1. DEXAMETHASONE [Suspect]
     Indication: METASTASES TO CENTRAL NERVOUS SYSTEM
     Dosage: 4MG BID PO
     Route: 048
     Dates: start: 20070424, end: 20070610
  2. DEXAMETHASONE [Suspect]
     Indication: NON-SMALL CELL LUNG CANCER
     Dosage: 4MG BID PO
     Route: 048
     Dates: start: 20070424, end: 20070610

REACTIONS (2)
  - HYPERGLYCAEMIA [None]
  - KETOACIDOSIS [None]
